FAERS Safety Report 8615544-6 (Version None)
Quarter: 2012Q3

REPORT INFORMATION
  Report Type: 
  Country: None (occurrence: None)
  Receive Date: 20120823
  Receipt Date: 20120814
  Transmission Date: 20120928
  Serious: Yes (Other)
  Sender: FDA-Public Use
  Company Number: US-JNJFOC-20120808826

PATIENT
  Sex: Female
  Weight: 76.66 kg

DRUGS (9)
  1. DURAGESIC-100 [Suspect]
     Indication: BACK PAIN
     Dosage: AS NEEDED FOR 72 HOURS
     Route: 062
     Dates: end: 20120101
  2. PREMARIN [Concomitant]
     Indication: HORMONE THERAPY
     Route: 048
  3. HYDROCHLOROTHIAZIDE [Concomitant]
     Indication: FLUID RETENTION
     Dosage: 75/50 MG
     Route: 065
  4. KETOPROFEN [Concomitant]
     Indication: FIBROMYALGIA
     Route: 048
  5. FENTANYL-100 [Suspect]
     Indication: BACK PAIN
     Dosage: AS NEEDED FOR 72 HOURS
     Route: 062
     Dates: start: 20120101
  6. AMITRIPTYLINE HCL [Concomitant]
     Indication: SLEEP DISORDER THERAPY
     Dosage: HALF OF 25 MG TABLET
     Route: 048
  7. SYNTHROID [Concomitant]
     Indication: HYPOTHYROIDISM
     Route: 048
  8. NORVASC [Concomitant]
     Indication: PRODUCT USED FOR UNKNOWN INDICATION
     Dosage: HALF OF 25 MG TABLET
     Route: 048
  9. POTASSIUM [Concomitant]
     Indication: HYPOKALAEMIA
     Route: 048

REACTIONS (10)
  - RENAL DISORDER [None]
  - WITHDRAWAL SYNDROME [None]
  - POOR QUALITY DRUG ADMINISTERED [None]
  - ARTHROPATHY [None]
  - ROTATOR CUFF SYNDROME [None]
  - DRUG ADMINISTERED AT INAPPROPRIATE SITE [None]
  - PRODUCT QUALITY ISSUE [None]
  - DRUG DOSE OMISSION [None]
  - BLOOD CHOLESTEROL ABNORMAL [None]
  - INAPPROPRIATE SCHEDULE OF DRUG ADMINISTRATION [None]
